FAERS Safety Report 15325259 (Version 6)
Quarter: 2020Q4

REPORT INFORMATION
  Report Type: Report from Study
  Country: None (occurrence: DE)
  Receive Date: 20180828
  Receipt Date: 20201214
  Transmission Date: 20210113
  Serious: Yes (Hospitalization)
  Sender: FDA-Public Use
  Company Number: DE-ABBVIE-18K-062-2223489-00

PATIENT
  Age: 48 Year
  Sex: Male

DRUGS (9)
  1. SIMPONI [Suspect]
     Active Substance: GOLIMUMAB
     Indication: SPONDYLOARTHROPATHY
     Route: 058
     Dates: start: 20171220
  2. CELECOXIB. [Concomitant]
     Active Substance: CELECOXIB
     Dates: start: 20180716, end: 20181215
  3. HUMIRA [Suspect]
     Active Substance: ADALIMUMAB
     Indication: RHEUMATOID ARTHRITIS
     Route: 058
     Dates: start: 20170905, end: 20171213
  4. SIMPONI [Suspect]
     Active Substance: GOLIMUMAB
     Indication: AXIAL SPONDYLOARTHRITIS
  5. ACEMETACIN [Concomitant]
     Active Substance: ACEMETACIN
     Indication: PRODUCT USED FOR UNKNOWN INDICATION
     Dates: start: 20170828
  6. HUMIRA [Suspect]
     Active Substance: ADALIMUMAB
     Indication: SPONDYLOARTHROPATHY
  7. CELECOXIB. [Concomitant]
     Active Substance: CELECOXIB
     Dates: start: 20190122
  8. ETORICOXIB. [Concomitant]
     Active Substance: ETORICOXIB
     Indication: PRODUCT USED FOR UNKNOWN INDICATION
     Dates: start: 20181207
  9. CELECOXIB. [Concomitant]
     Active Substance: CELECOXIB
     Indication: PRODUCT USED FOR UNKNOWN INDICATION
     Dates: start: 20171124

REACTIONS (10)
  - Chronic gastritis [Not Recovered/Not Resolved]
  - Gastrointestinal infection [Not Recovered/Not Resolved]
  - Influenza like illness [Unknown]
  - Rectal adenoma [Recovered/Resolved]
  - Vertigo [Unknown]
  - Oral herpes [Unknown]
  - Axial spondyloarthritis [Unknown]
  - Restless legs syndrome [Recovered/Resolved]
  - Chronic idiopathic pain syndrome [Unknown]
  - Chronic idiopathic pain syndrome [Recovered/Resolved]

NARRATIVE: CASE EVENT DATE: 20171225
